FAERS Safety Report 18948058 (Version 7)
Quarter: 2022Q4

REPORT INFORMATION
  Report Type: Spontaneous
  Country: US (occurrence: US)
  Receive Date: 20210226
  Receipt Date: 20221019
  Transmission Date: 20230113
  Serious: Yes (Other)
  Sender: FDA-Public Use
  Company Number: US-PFIZER INC-2018098146

PATIENT
  Age: 68 Year
  Sex: Female

DRUGS (1)
  1. XELJANZ XR [Suspect]
     Active Substance: TOFACITINIB CITRATE
     Dosage: 11 MG

REACTIONS (9)
  - Breast cancer [Unknown]
  - Circumstance or information capable of leading to medication error [Unknown]
  - Memory impairment [Unknown]
  - Depressed mood [Unknown]
  - Confusional state [Unknown]
  - Crying [Unknown]
  - Pain [Unknown]
  - Tremor [Unknown]
  - Disturbance in attention [Unknown]

NARRATIVE: CASE EVENT DATE: 20220101
